FAERS Safety Report 9897929 (Version 2)
Quarter: 2014Q2

REPORT INFORMATION
  Report Type: Spontaneous
  Country: US (occurrence: US)
  Receive Date: 20140214
  Receipt Date: 20140402
  Transmission Date: 20141212
  Serious: Yes (Hospitalization)
  Sender: FDA-Public Use
  Company Number: US-PFIZER INC-2014043292

PATIENT
  Age: 62 Year
  Sex: Female
  Weight: 65.76 kg

DRUGS (3)
  1. LYRICA [Suspect]
     Indication: FIBROMYALGIA
     Dosage: 300 MG, DAILY
  2. LYRICA [Suspect]
     Dosage: 300 MG, DAILY
  3. RESTORIL [Concomitant]
     Indication: NERVOUS SYSTEM DISORDER
     Dosage: UNK

REACTIONS (5)
  - Myalgia [Unknown]
  - Neuralgia [Unknown]
  - Nasopharyngitis [Unknown]
  - Influenza [Unknown]
  - Arthritis [Unknown]
